FAERS Safety Report 5123586-0 (Version None)
Quarter: 2006Q4

REPORT INFORMATION
  Report Type: 
  Country: None (occurrence: None)
  Receive Date: 20061010
  Receipt Date: 20060928
  Transmission Date: 20070319
  Serious: Yes (Hospitalization)
  Sender: FDA-Public Use
  Company Number: FR-JNJFOC-20061001592

PATIENT
  Age: 41 Year
  Sex: Female

DRUGS (5)
  1. IXPRIM [Suspect]
     Indication: RHEUMATOID ARTHRITIS
     Route: 048
  2. NAPROSYN [Suspect]
     Indication: RHEUMATOID ARTHRITIS
     Route: 048
  3. CORTANCYL [Suspect]
     Indication: RHEUMATOID ARTHRITIS
     Route: 048
  4. PANTOPRAZOLE SODIUM [Suspect]
     Indication: DRUG USE FOR UNKNOWN INDICATION
     Route: 048
  5. PANTOPRAZOLE SODIUM [Concomitant]
     Indication: CONTRACEPTION
     Route: 048

REACTIONS (1)
  - PANCREATITIS [None]
